FAERS Safety Report 9405247 (Version 1)
Quarter: 2013Q3

REPORT INFORMATION
  Report Type: Report from Study
  Country: US (occurrence: US)
  Receive Date: 20130717
  Receipt Date: 20130717
  Transmission Date: 20140515
  Serious: No
  Sender: FDA-Public Use
  Company Number: US-VERTEX PHARMACEUTICALS INC-AE-2012-009691

PATIENT
  Sex: Male

DRUGS (1)
  1. VX-770 [Suspect]
     Indication: CYSTIC FIBROSIS
     Dosage: 150 MG, BID
     Route: 048
     Dates: start: 20120508

REACTIONS (7)
  - Depression [Unknown]
  - Anxiety [Unknown]
  - Drug dose omission [Unknown]
  - Sinus congestion [Unknown]
  - Throat irritation [Unknown]
  - Headache [Unknown]
  - Abdominal pain upper [Unknown]
